FAERS Safety Report 8217777 (Version 3)
Quarter: 2012Q4

REPORT INFORMATION
  Report Type: Report from Study
  Country: DE (occurrence: DE)
  Receive Date: 20111101
  Receipt Date: 20121210
  Transmission Date: 20130627
  Serious: Yes (Hospitalization)
  Sender: FDA-Public Use
  Company Number: DE-GLAXOSMITHKLINE-B0756104A

PATIENT
  Sex: Female
  Weight: 73.7 kg

DRUGS (2)
  1. TOPOTECAN [Suspect]
     Indication: OVARIAN CANCER
     Dosage: 1.25MG Per day
     Route: 042
     Dates: start: 20110912
  2. BLINDED STUDY MEDICATION [Suspect]
     Indication: OVARIAN CANCER
     Route: 048
     Dates: start: 20110919

REACTIONS (3)
  - Leukopenia [Recovered/Resolved]
  - Weight decreased [Recovered/Resolved]
  - Fatigue [Recovered/Resolved]
